FAERS Safety Report 4457543-4 (Version None)
Quarter: 2004Q3

REPORT INFORMATION
  Report Type: 
  Country: None (occurrence: None)
  Receive Date: 20040922
  Receipt Date: 20040908
  Transmission Date: 20050211
  Serious: Yes (Life-Threatening, Hospitalization, Other)
  Sender: FDA-Public Use
  Company Number: USA040977473

PATIENT
  Age: 18 Year
  Sex: Female
  Weight: 55 kg

DRUGS (2)
  1. HUMALOG [Suspect]
     Indication: DIABETES MELLITUS
     Dates: start: 19971201
  2. HUMULIN U [Suspect]
     Indication: DIABETES MELLITUS
     Dates: start: 19971201

REACTIONS (4)
  - BLOOD GLUCOSE DECREASED [None]
  - CARDIAC ARREST [None]
  - COMA [None]
  - FOOD POISONING [None]
